FAERS Safety Report 22611225 (Version 1)
Quarter: 2023Q2

REPORT INFORMATION
  Report Type: Spontaneous
  Country: IT (occurrence: IT)
  Receive Date: 20230616
  Receipt Date: 20230616
  Transmission Date: 20230721
  Serious: Yes (Other)
  Sender: FDA-Public Use
  Company Number: None

PATIENT

DRUGS (7)
  1. XCOPRI [Suspect]
     Active Substance: CENOBAMATE
     Indication: Partial seizures
     Dosage: 1 TABLET 150 MG DAILY (150 MG, 24 HR)
     Route: 048
     Dates: start: 20230317, end: 20230510
  2. FYCOMPA [Concomitant]
     Active Substance: PERAMPANEL
     Indication: Partial seizures
     Dosage: 1 TABLET IN THE EVENING OF 6 MG EACH DAY (6 MG, 24 HR)
     Route: 048
  3. VIMPAT [Concomitant]
     Active Substance: LACOSAMIDE
     Indication: Partial seizures
     Dosage: 1 TABLET 200 MG IN THE MORNING AND 1 TABLET 200 MG IN THE EVENING (200 MG,14 HR)
     Route: 048
  4. LORAZEPAM [Concomitant]
     Active Substance: LORAZEPAM
     Indication: Partial seizures
     Dosage: 4 GTT IN THE MORNING, 4 GTT AT 12 NOON AND 8 GTT IN THE EVENING (3 DOSAGE FORMS,8 HR)
     Route: 048
  5. SABRIL [Concomitant]
     Active Substance: VIGABATRIN
     Indication: Partial seizures
     Dosage: 2 TABLET 500 MG IN THE MORNING AND 2 TABLET 500 MG IN THE EVENING (1000 MG,14 HR)
     Route: 048
  6. CIPRALEX                           /01588502/ [Concomitant]
     Indication: Partial seizures
     Dosage: 1 TABLET 20 MG DAILY (20 MG,24 HR)
     Route: 048
  7. GARDENALE                          /00023201/ [Concomitant]
     Indication: Partial seizures
     Dosage: 1 TABLET 100 MG AND 1 TABLET 50 MG DAILY (2 DOSAGE FORMS,24 HR)
     Route: 048

REACTIONS (5)
  - Petit mal epilepsy [Recovering/Resolving]
  - Vertigo [Recovering/Resolving]
  - Somnolence [Recovering/Resolving]
  - Balance disorder [Recovering/Resolving]
  - Aphasia [Recovering/Resolving]

NARRATIVE: CASE EVENT DATE: 20230415
